FAERS Safety Report 8531246-9 (Version None)
Quarter: 2012Q3

REPORT INFORMATION
  Report Type: 
  Country: None (occurrence: None)
  Receive Date: 20120723
  Receipt Date: 20120717
  Transmission Date: 20120928
  Serious: Yes (Hospitalization)
  Sender: FDA-Public Use
  Company Number: BR-B.I. PHARMACEUTICALS,INC./RIDGEFIELD-2012-BR-00224BR

PATIENT
  Sex: Female

DRUGS (2)
  1. LERCANIDIPINE [Concomitant]
     Indication: BLOOD PRESSURE INCREASED
  2. MICARDIS HCT [Suspect]
     Indication: BLOOD PRESSURE INCREASED
     Route: 048
     Dates: start: 20111101

REACTIONS (4)
  - LIVER DISORDER [None]
  - CHEST PAIN [None]
  - ABDOMINAL DISTENSION [None]
  - PRODUCT QUALITY ISSUE [None]
